FAERS Safety Report 6234293-5 (Version None)
Quarter: 2009Q2

REPORT INFORMATION
  Report Type: 
  Country: None (occurrence: None)
  Receive Date: 20090612
  Receipt Date: 20090601
  Transmission Date: 20091009
  Serious: Yes (Other)
  Sender: FDA-Public Use
  Company Number: PAR_03013_2009

PATIENT
  Age: 38 Year
  Sex: Female

DRUGS (1)
  1. CABERGOLINE [Suspect]
     Indication: PROLACTINOMA
     Dosage: (0.25 MG 1X/WEEK)

REACTIONS (6)
  - DELUSION [None]
  - MAJOR DEPRESSION [None]
  - MARITAL PROBLEM [None]
  - NAUSEA [None]
  - OSTEOPENIA [None]
  - PATHOLOGICAL GAMBLING [None]
